FAERS Safety Report 9445442 (Version 2)
Quarter: 2014Q2

REPORT INFORMATION
  Report Type: Spontaneous
  Country: GB (occurrence: GB)
  Receive Date: 20130807
  Receipt Date: 20140516
  Transmission Date: 20141212
  Serious: Yes (Death, Other)
  Sender: FDA-Public Use
  Company Number: GB-WATSON-2013-13854

PATIENT
  Sex: Female

DRUGS (27)
  1. CITALOPRAM [Suspect]
     Indication: DEPRESSION
     Dosage: 20 MG, DAILY
     Route: 048
     Dates: start: 20091211, end: 20100205
  2. CITALOPRAM [Suspect]
     Indication: ANXIETY
  3. TERBINAFINE [Concomitant]
     Indication: PRODUCT USED FOR UNKNOWN INDICATION
     Dosage: UNKNOWN
     Route: 061
     Dates: start: 20090407
  4. SALBUTAMOL [Concomitant]
     Indication: PRODUCT USED FOR UNKNOWN INDICATION
     Dosage: 4 MG, UNKNOWN
     Route: 065
     Dates: start: 20100706
  5. DEXAMETHASONE [Concomitant]
     Indication: PRODUCT USED FOR UNKNOWN INDICATION
     Dosage: 4 MG, UNKNOWN
     Route: 065
     Dates: start: 20100706
  6. QVAR CFC FREE INHALER [Concomitant]
     Indication: PRODUCT USED FOR UNKNOWN INDICATION
     Dosage: 100 MCG
     Route: 065
     Dates: start: 20090604
  7. FERROUS FUMARATE [Concomitant]
     Indication: PRODUCT USED FOR UNKNOWN INDICATION
     Dosage: 210 MG, UNKNOWN
     Route: 065
     Dates: start: 20100607
  8. PYRIDOXINE [Concomitant]
     Indication: PRODUCT USED FOR UNKNOWN INDICATION
     Dosage: 50 MG, UNKNOWN
     Route: 065
     Dates: start: 20100914
  9. TEMAZEPAM [Concomitant]
     Indication: PRODUCT USED FOR UNKNOWN INDICATION
     Dosage: 10 MG, UNKNOWN
     Route: 065
     Dates: start: 20100824
  10. PARACETAMOL [Concomitant]
     Indication: ANALGESIC THERAPY
     Dosage: 500 MG, UNKNOWN
     Route: 065
     Dates: start: 20100603
  11. PEPTAC PEPPERMINT SF LIQ [Concomitant]
     Indication: REFLUX GASTRITIS
     Dosage: 10 UNK, UNKNOWN
     Route: 065
     Dates: start: 20100603
  12. SODIUM CROMOGLICATE [Concomitant]
     Indication: PRODUCT USED FOR UNKNOWN INDICATION
     Dosage: 15 UNK, UNKNOWN
     Route: 065
     Dates: start: 20100420
  13. OPTICROM HAYFEVER EYE DROP 2% [Concomitant]
     Indication: SEASONAL ALLERGY
     Dosage: UNKNOWN
     Route: 047
  14. FOLIC ACID [Concomitant]
     Indication: PRODUCT USED FOR UNKNOWN INDICATION
     Dosage: 400 MCG
     Route: 065
     Dates: start: 20100205
  15. HEDRIN LOTION [Concomitant]
     Indication: LICE INFESTATION
     Dosage: UNKNOWN
     Route: 065
     Dates: start: 20091120
  16. CO-DYDRAMOL [Concomitant]
     Indication: PAIN
     Dosage: UNKNOWN
     Route: 065
     Dates: start: 20091028
  17. CO-CODAMOL [Concomitant]
     Indication: PAIN
     Dosage: UNKNOWN
     Route: 065
     Dates: start: 20090824
  18. AMOXICILLIN [Concomitant]
     Indication: PRODUCT USED FOR UNKNOWN INDICATION
     Dosage: 500 MG, UNKNOWN
     Route: 065
     Dates: start: 20090824
  19. AMOXICILLIN [Concomitant]
     Dosage: 250 MG, UNKNOWN
     Route: 065
     Dates: start: 20090604
  20. FLUCLOXACILLIN [Concomitant]
     Indication: PRODUCT USED FOR UNKNOWN INDICATION
     Dosage: 250 MG, UNKNOWN
     Route: 065
     Dates: start: 20090611
  21. SILVER SULFADIAZINE CREAM [Concomitant]
     Indication: PRODUCT USED FOR UNKNOWN INDICATION
     Dosage: UNKNOWN
     Route: 061
     Dates: start: 20090604
  22. VENTOLIN [Concomitant]
     Indication: PRODUCT USED FOR UNKNOWN INDICATION
     Dosage: 100 MCG
     Route: 065
     Dates: start: 20100824
  23. VENTOLIN [Concomitant]
     Dosage: 100 MCG
     Route: 065
     Dates: start: 20100706
  24. VENTOLIN [Concomitant]
     Dosage: 100 MCG
     Route: 065
     Dates: start: 20100426
  25. VENTOLIN [Concomitant]
     Dosage: 100 MCG
     Route: 065
     Dates: start: 20090824
  26. VENTOLIN [Concomitant]
     Dosage: 100 MCG
     Route: 065
     Dates: start: 20090612
  27. VENTOLIN [Concomitant]
     Dosage: 100 MCG
     Route: 065
     Dates: start: 20090312

REACTIONS (2)
  - Abortion spontaneous [Fatal]
  - Maternal exposure during pregnancy [Recovering/Resolving]
